FAERS Safety Report 19706778 (Version 1)
Quarter: 2021Q3

REPORT INFORMATION
  Report Type: Spontaneous
  Country: DE (occurrence: DE)
  Receive Date: 20210817
  Receipt Date: 20210817
  Transmission Date: 20211014
  Serious: Yes (Hospitalization, Other)
  Sender: FDA-Public Use
  Company Number: DE-TEVA-2021-DE-1941180

PATIENT
  Age: 90 Year
  Sex: Female

DRUGS (5)
  1. ACETYLSALICYLSAURE [Suspect]
     Active Substance: ASPIRIN
     Dosage: 100 MILLIGRAM DAILY;  0?1?0?0
     Route: 048
  2. CANDESARTAN. [Concomitant]
     Active Substance: CANDESARTAN
     Dosage: 16 MILLIGRAM DAILY; 8 MG, 2?0?0?0
     Route: 048
  3. TORASEMID [Suspect]
     Active Substance: TORSEMIDE
     Dosage: 20 MILLIGRAM DAILY; 10 MG, 2?0?0?0
     Route: 048
  4. CLONIDIN [Concomitant]
     Active Substance: CLONIDINE
     Dosage: DOSAGE NOT KNOWN,
     Route: 048
  5. SIMVASTATIN. [Concomitant]
     Active Substance: SIMVASTATIN
     Dosage: 20 MILLIGRAM DAILY; 0?0?1?0
     Route: 048

REACTIONS (3)
  - Haematemesis [Unknown]
  - Dyspepsia [Unknown]
  - Diarrhoea [Unknown]
